FAERS Safety Report 9111465 (Version 1)
Quarter: 2013Q1

REPORT INFORMATION
  Report Type: Spontaneous
  Country: US (occurrence: US)
  Receive Date: 20130219
  Receipt Date: 20130219
  Transmission Date: 20140127
  Serious: No
  Sender: FDA-Public Use
  Company Number: US-BRISTOL-MYERS SQUIBB COMPANY-16613747

PATIENT
  Age: 64 Year
  Sex: Female

DRUGS (3)
  1. ORENCIA [Suspect]
     Indication: RHEUMATOID ARTHRITIS
     Dosage: 1DF= 3 VIALS
     Route: 042
     Dates: start: 20120517
  2. TYLENOL [Concomitant]
     Dates: start: 20120517
  3. ZYRTEC [Concomitant]
     Route: 048
     Dates: start: 20120517

REACTIONS (1)
  - Nausea [Unknown]
